FAERS Safety Report 5841082-X (Version None)
Quarter: 2008Q3

REPORT INFORMATION
  Report Type: 
  Country: None (occurrence: None)
  Receive Date: 20080812
  Receipt Date: 20080801
  Transmission Date: 20090109
  Serious: Yes (Hospitalization)
  Sender: FDA-Public Use
  Company Number: GB-RANBAXY-2007RR-07151

PATIENT

DRUGS (1)
  1. ACETAMINOPHEN [Suspect]
     Dosage: 25 G, UNK

REACTIONS (3)
  - HEPATOTOXICITY [None]
  - LIVER DISORDER [None]
  - OVERDOSE [None]
